FAERS Safety Report 14197751 (Version 4)
Quarter: 2018Q3

REPORT INFORMATION
  Report Type: Spontaneous
  Country: FR (occurrence: FR)
  Receive Date: 20171117
  Receipt Date: 20180809
  Transmission Date: 20181010
  Serious: Yes (Hospitalization, Other)
  Sender: FDA-Public Use
  Company Number: FR-AMGEN-FRASP2017172126

PATIENT
  Age: 25 Year
  Sex: Male

DRUGS (2)
  1. ENBREL [Suspect]
     Active Substance: ETANERCEPT
     Indication: RHEUMATIC DISORDER
     Dosage: 50 MG, WEEKLY
     Route: 058
     Dates: start: 201703, end: 20170914
  2. ARAVA [Suspect]
     Active Substance: LEFLUNOMIDE
     Indication: PRODUCT USED FOR UNKNOWN INDICATION
     Dosage: UNK
     Route: 048
     Dates: start: 201703

REACTIONS (5)
  - Hypertension [Unknown]
  - Syncope [Unknown]
  - Transient ischaemic attack [Unknown]
  - Endocarditis noninfective [Recovered/Resolved]
  - Cardiac granuloma [Unknown]

NARRATIVE: CASE EVENT DATE: 20170901
